FAERS Safety Report 10286958 (Version 1)
Quarter: 2014Q3

REPORT INFORMATION
  Report Type: Spontaneous
  Country: IT (occurrence: None)
  Receive Date: 20140707
  Receipt Date: 20140707
  Transmission Date: 20150326
  Serious: Yes (Other)
  Sender: FDA-Public Use
  Company Number: AUR-APL-2014-02073

PATIENT
  Age: 52 Year
  Sex: Female

DRUGS (1)
  1. LEVOFLOXACIN [Suspect]
     Active Substance: LEVOFLOXACIN
     Indication: PHARYNGITIS
     Dosage: TOTAL
     Route: 048
     Dates: start: 20131225, end: 20131225

REACTIONS (2)
  - Hyperhidrosis [None]
  - Presyncope [None]

NARRATIVE: CASE EVENT DATE: 20131225
